FAERS Safety Report 24677321 (Version 3)
Quarter: 2025Q1

REPORT INFORMATION
  Report Type: Spontaneous
  Country: GB (occurrence: GB)
  Receive Date: 20241129
  Receipt Date: 20250303
  Transmission Date: 20250408
  Serious: Yes (Other)
  Sender: CSL BEHRING
  Company Number: GB-BEH-2024186632

PATIENT
  Age: 1 Year

DRUGS (2)
  1. IDELVION [Suspect]
     Active Substance: COAGULATION FACTOR IX RECOMBINANT HUMAN
     Indication: Cerebral haemorrhage
     Route: 065
     Dates: start: 202402
  2. IDELVION [Suspect]
     Active Substance: COAGULATION FACTOR IX RECOMBINANT HUMAN
     Indication: Cerebral haemorrhage
     Route: 065
     Dates: start: 202402

REACTIONS (3)
  - Seizure [Unknown]
  - Haemorrhage [Unknown]
  - Coagulation factor deficiency [Unknown]
